FAERS Safety Report 4927527-8 (Version None)
Quarter: 2006Q1

REPORT INFORMATION
  Report Type: 
  Country: None (occurrence: None)
  Receive Date: 20060228
  Receipt Date: 20050831
  Transmission Date: 20060701
  Serious: Yes (Death, Hospitalization)
  Sender: FDA-Public Use
  Company Number: US-MERCK-0509USA00102

PATIENT
  Age: 64 Year
  Sex: Male
  Weight: 91 kg

DRUGS (15)
  1. VIOXX [Suspect]
     Indication: ARTHRITIS
     Route: 048
     Dates: start: 20021001, end: 20040418
  2. VIOXX [Suspect]
     Route: 048
     Dates: end: 20021001
  3. VIOXX [Suspect]
     Route: 048
     Dates: start: 20010914
  4. VIOXX [Suspect]
     Indication: PAIN
     Route: 048
     Dates: start: 20021001, end: 20040418
  5. VIOXX [Suspect]
     Route: 048
     Dates: end: 20021001
  6. VIOXX [Suspect]
     Route: 048
     Dates: start: 20010914
  7. ASPIRIN [Concomitant]
     Route: 048
     Dates: end: 20021001
  8. ASPIRIN [Concomitant]
     Route: 048
     Dates: end: 20021001
  9. ASPIRIN [Concomitant]
     Route: 048
     Dates: end: 20021001
  10. ASPIRIN [Concomitant]
     Route: 048
     Dates: start: 20021001
  11. XANAX [Concomitant]
     Indication: ANXIETY
     Route: 048
     Dates: start: 20021015
  12. ZESTRIL [Concomitant]
     Route: 065
  13. CALTRATE [Concomitant]
     Route: 065
  14. VITAMIN E [Concomitant]
     Route: 065
  15. LIPITOR [Concomitant]
     Route: 065

REACTIONS (14)
  - ARTERIOSCLEROSIS CORONARY ARTERY [None]
  - BLOOD CREATINE PHOSPHOKINASE INCREASED [None]
  - BLOOD PRESSURE DIASTOLIC INCREASED [None]
  - CARDIAC ARREST [None]
  - CAROTID ARTERY OCCLUSION [None]
  - CAROTID ARTERY STENOSIS [None]
  - CORONARY ARTERY DISEASE [None]
  - DISEASE PROGRESSION [None]
  - DIVERTICULITIS [None]
  - HYDRONEPHROSIS [None]
  - MYOCARDIAL INFARCTION [None]
  - PERIPHERAL ARTERIAL OCCLUSIVE DISEASE [None]
  - PROSTATE CANCER [None]
  - RENAL ARTERY STENOSIS [None]
